FAERS Safety Report 20006787 (Version 2)
Quarter: 2021Q4

REPORT INFORMATION
  Report Type: Spontaneous
  Country: US (occurrence: US)
  Receive Date: 20211028
  Receipt Date: 20211028
  Transmission Date: 20220304
  Serious: No
  Sender: FDA-Public Use
  Company Number: US-ELI_LILLY_AND_COMPANY-US202110010050

PATIENT
  Sex: Male

DRUGS (1)
  1. HUMATROPE [Suspect]
     Active Substance: SOMATROPIN
     Dosage: 2.8 MG, UNKNOWN
     Route: 058

REACTIONS (4)
  - Injection site haemorrhage [Unknown]
  - Injection site discomfort [Unknown]
  - Injection site pain [Unknown]
  - Product dose omission issue [Unknown]
